FAERS Safety Report 9417115 (Version 1)
Quarter: 2013Q3

REPORT INFORMATION
  Report Type: Spontaneous
  Country: AU (occurrence: AU)
  Receive Date: 20130724
  Receipt Date: 20130724
  Transmission Date: 20140515
  Serious: Yes (Death)
  Sender: FDA-Public Use
  Company Number: AU-B.I. PHARMACEUTICALS,INC./RIDGEFIELD-2013-AU-00882AU

PATIENT
  Sex: Female

DRUGS (14)
  1. PRADAXA [Suspect]
     Indication: CEREBROVASCULAR ACCIDENT PROPHYLAXIS
     Dosage: 220 MG
     Dates: start: 20110922, end: 20130626
  2. PRADAXA [Suspect]
     Indication: ATRIAL FIBRILLATION
  3. SINEMET [Concomitant]
  4. LANOXIN PG [Concomitant]
  5. LEXAPRO [Concomitant]
     Indication: AFFECTIVE DISORDER
  6. NORSPAN [Concomitant]
     Indication: ARTHRALGIA
  7. PANADOL OSTEO [Concomitant]
  8. LASIX [Concomitant]
  9. VIBRATABS [Concomitant]
     Indication: ROSACEA
  10. SOMAC [Concomitant]
  11. LIPITOR [Concomitant]
  12. DITROPAN [Concomitant]
  13. SYMBICORT [Concomitant]
  14. VITAMIN D [Concomitant]

REACTIONS (1)
  - Pneumonia [Fatal]
